FAERS Safety Report 25842144 (Version 1)
Quarter: 2025Q3

REPORT INFORMATION
  Report Type: Report from Study
  Country: AU (occurrence: AU)
  Receive Date: 20250924
  Receipt Date: 20250924
  Transmission Date: 20251020
  Serious: Yes (Hospitalization)
  Sender: TAKEDA
  Company Number: AU-SA-2025SA279874

PATIENT
  Age: 16 Year
  Sex: Male

DRUGS (1)
  1. IDURSULFASE [Suspect]
     Active Substance: IDURSULFASE
     Indication: Mucopolysaccharidosis II
     Dosage: 24 MILLIGRAM, 1/WEEK

REACTIONS (3)
  - Nervous system disorder [Not Recovered/Not Resolved]
  - Sleep disorder due to a general medical condition [Not Recovered/Not Resolved]
  - Psychomotor hyperactivity [Not Recovered/Not Resolved]

NARRATIVE: CASE EVENT DATE: 20250901
